FAERS Safety Report 7000838-0 (Version None)
Quarter: 2010Q3

REPORT INFORMATION
  Report Type: 
  Country: None (occurrence: None)
  Receive Date: 20100920
  Receipt Date: 20091019
  Transmission Date: 20110219
  Serious: No
  Sender: FDA-Public Use
  Company Number: US-ASTRAZENECA-2009SE21066

PATIENT
  Sex: Female
  Weight: 45.8 kg

DRUGS (4)
  1. SEROQUEL [Suspect]
     Dosage: 100-200 MG
     Route: 048
     Dates: end: 20090801
  2. PROTONIX [Concomitant]
  3. CALCIUM [Concomitant]
  4. NEURONTIN [Concomitant]

REACTIONS (2)
  - ABDOMINAL DISCOMFORT [None]
  - DYSURIA [None]
